FAERS Safety Report 25885876 (Version 1)
Quarter: 2025Q4

REPORT INFORMATION
  Report Type: Spontaneous
  Country: US (occurrence: None)
  Receive Date: 20251006
  Receipt Date: 20251006
  Transmission Date: 20260117
  Serious: No
  Sender: INCYTE
  Company Number: US-INCYTE CORPORATION-2025IN010591

PATIENT
  Age: 58 Year

DRUGS (3)
  1. JAKAFI [Suspect]
     Active Substance: RUXOLITINIB
     Indication: Polycythaemia vera
     Dosage: 10 MILLIGRAM, QD
  2. JAKAFI [Suspect]
     Active Substance: RUXOLITINIB
     Indication: Myeloproliferative neoplasm
  3. JAKAFI [Suspect]
     Active Substance: RUXOLITINIB
     Indication: Portal vein thrombosis

REACTIONS (3)
  - Pollakiuria [Unknown]
  - Blood glucose increased [Unknown]
  - Off label use [Unknown]
